FAERS Safety Report 5553374-2 (Version None)
Quarter: 2007Q4

REPORT INFORMATION
  Report Type: 
  Country: None (occurrence: None)
  Receive Date: 20071128
  Receipt Date: 20070809
  Transmission Date: 20080405
  Serious: Yes (Other)
  Sender: FDA-Public Use
  Company Number: CIP07001572

PATIENT
  Age: 52 Year
  Sex: Female

DRUGS (24)
  1. ACTONEL [Suspect]
     Dosage: ORAL
     Route: 048
     Dates: start: 20060101, end: 20060721
  2. FOSAMAX [Suspect]
     Dosage: 70 MG ONCE A WEEK, ORAL
     Route: 048
     Dates: start: 20060721, end: 20061113
  3. KETOROLAC (KETOROLAC) [Concomitant]
  4. GUAIFENESIN PSE (PSEUDOEPHEDRINE HYDROCHLORIDE, GUAIFENESIN) [Concomitant]
  5. PLAQUENIL /00072601/ (HYDROXYCHLOROQUINE) [Concomitant]
  6. ERYTHROMYCIN STEARATE (ERYTHROMYCIN STEARATE) [Concomitant]
  7. COLCHICUM JTL LIQ [Concomitant]
  8. POTASSIUM CHLORIDE [Concomitant]
  9. SEREVENT [Concomitant]
  10. ALLOPURINOL [Concomitant]
  11. QVAR [Concomitant]
  12. FUROSEMIDE [Concomitant]
  13. DAYPRO [Concomitant]
  14. HYDROCODONE W/ACETAMINOPHEN (PARACETAMOL, HYDROCODONE BITARTRATE) [Concomitant]
  15. KENALOG [Concomitant]
  16. PREVACID [Concomitant]
  17. ALBUTEROL /00139501/ (SALBUTAMOL) [Concomitant]
  18. HYDROXYZINE [Concomitant]
  19. CLOBETASOL (CLOBETASOL) [Concomitant]
  20. TYLENOL /00020001/ (PARACETAMOL) [Concomitant]
  21. CALCIUM (CALCIUM) [Concomitant]
  22. MULTIPLE VITAMINS (ERGOCALCIFEROL, FOLIC ACID, VITAMIN B NOS, TOCOPHER [Concomitant]
  23. AYR SALINE (SODIUM CHLORIDE) [Concomitant]
  24. SALINE /00075401/ (SODIUM CHLORIDE) [Concomitant]

REACTIONS (8)
  - CREPITATIONS [None]
  - GINGIVAL PAIN [None]
  - JOINT LOCK [None]
  - MOUTH ULCERATION [None]
  - ORAL INTAKE REDUCED [None]
  - ORAL PAIN [None]
  - OSTEONECROSIS [None]
  - PAIN IN JAW [None]
